FAERS Safety Report 8530272-3 (Version None)
Quarter: 2012Q3

REPORT INFORMATION
  Report Type: 
  Country: None (occurrence: None)
  Receive Date: 20120723
  Receipt Date: 20120716
  Transmission Date: 20120928
  Serious: Yes (Hospitalization)
  Sender: FDA-Public Use
  Company Number: US-CELGENEUS-163-21880-12063317

PATIENT
  Sex: Female

DRUGS (10)
  1. CLOPIDOGREL [Concomitant]
     Route: 065
  2. MULTI-VITAMINS [Concomitant]
     Route: 065
  3. TOPROL-XL [Concomitant]
     Route: 065
  4. BETHANECHOL [Concomitant]
     Route: 065
  5. CALCIUM [Concomitant]
     Route: 065
  6. FUROSEMIDE [Concomitant]
     Route: 065
  7. KLOR-CON [Concomitant]
     Route: 065
  8. REVLIMID [Suspect]
     Indication: MULTIPLE MYELOMA
     Dosage: 5 MILLIGRAM
     Route: 048
     Dates: start: 20120521
  9. ALENDRONATE SODIUM [Concomitant]
     Route: 065
  10. LISINOPRIL [Concomitant]
     Route: 065

REACTIONS (1)
  - FEMUR FRACTURE [None]
